FAERS Safety Report 24678543 (Version 2)
Quarter: 2024Q4

REPORT INFORMATION
  Report Type: Spontaneous
  Country: US (occurrence: US)
  Receive Date: 20241129
  Receipt Date: 20241212
  Transmission Date: 20250115
  Serious: Yes (Hospitalization, Other)
  Sender: ABBVIE
  Company Number: US-ABBVIE-6024017

PATIENT
  Age: 51 Year
  Sex: Female
  Weight: 74 kg

DRUGS (3)
  1. ELAHERE [Suspect]
     Active Substance: MIRVETUXIMAB SORAVTANSINE-GYNX
     Indication: Ovarian epithelial cancer
     Dosage: SIXTH LINE ELAHERE?6MG/KG AIBW 350MG
     Route: 042
     Dates: start: 20240927, end: 20241018
  2. SYSTANE (HYPROMELLOSE 2910 (4000 MPA.S)) [Concomitant]
     Active Substance: HYPROMELLOSE 2910 (4000 MPA.S)
     Indication: Eye lubrication therapy
     Dates: start: 20240927
  3. PREDNISOLONE ACETATE [Concomitant]
     Active Substance: PREDNISOLONE ACETATE
     Indication: Chemotherapy side effect prophylaxis
     Dosage: 1GTT OU??6X/DAY DAY PRIOR, DAY OF DAY AFTER INFUSION AND 4X/DAY DAY 5-8
     Dates: start: 20240926, end: 20241105

REACTIONS (7)
  - Papilloedema [Recovering/Resolving]
  - Papilloedema [Recovered/Resolved]
  - Vitreous floaters [Unknown]
  - Eye irritation [Unknown]
  - Vision blurred [Unknown]
  - Keratitis [Unknown]
  - Eye movement disorder [Unknown]

NARRATIVE: CASE EVENT DATE: 20240101
